FAERS Safety Report 5087884-1 (Version None)
Quarter: 2006Q3

REPORT INFORMATION
  Report Type: 
  Country: None (occurrence: None)
  Receive Date: 20060824
  Receipt Date: 20060814
  Transmission Date: 20061208
  Serious: Yes (Other)
  Sender: FDA-Public Use
  Company Number: US-JNJFOC-20060803338

PATIENT
  Sex: Female
  Weight: 49.9 kg

DRUGS (2)
  1. CONCERTA [Suspect]
     Indication: ATTENTION DEFICIT/HYPERACTIVITY DISORDER
     Route: 048
  2. METADATE CD [Concomitant]
     Route: 048

REACTIONS (2)
  - INSOMNIA [None]
  - PSYCHOTIC DISORDER [None]
